FAERS Safety Report 6558067-0 (Version None)
Quarter: 2010Q1

REPORT INFORMATION
  Report Type: 
  Country: None (occurrence: None)
  Receive Date: 20100129
  Receipt Date: 20100119
  Transmission Date: 20100710
  Serious: Yes (Hospitalization)
  Sender: FDA-Public Use
  Company Number: US-WYE-H12356809

PATIENT
  Sex: Female
  Weight: 63.11 kg

DRUGS (6)
  1. EFFEXOR XR [Suspect]
     Indication: BIPOLAR I DISORDER
     Route: 048
     Dates: start: 20070101
  2. LISINOPRIL [Concomitant]
     Dosage: UNKNOWN
  3. SYNTHROID [Concomitant]
     Dosage: UNKNOWN
  4. KEPPRA [Concomitant]
     Dosage: UNKNOWN
  5. SEROQUEL [Concomitant]
     Indication: BIPOLAR I DISORDER
     Route: 048
  6. KLONOPIN [Concomitant]
     Indication: ANXIETY
     Route: 048

REACTIONS (3)
  - CONVULSION [None]
  - FALL [None]
  - HIP FRACTURE [None]
